FAERS Safety Report 12076966 (Version 1)
Quarter: 2016Q1

REPORT INFORMATION
  Report Type: Spontaneous
  Country: GB (occurrence: GB)
  Receive Date: 20160215
  Receipt Date: 20160215
  Transmission Date: 20160526
  Serious: Yes (Other)
  Sender: FDA-Public Use
  Company Number: GB-009507513-1602GBR005763

PATIENT
  Age: 25 Year
  Sex: Female
  Weight: 161 kg

DRUGS (2)
  1. NEXPLANON [Suspect]
     Active Substance: ETONOGESTREL
     Dosage: UNK
     Dates: start: 201501
  2. ACETAMINOPHEN AND CODEINE [Concomitant]
     Active Substance: ACETAMINOPHEN\CODEINE PHOSPHATE
     Dosage: TAKE 1 OR 2 FOUR TIMES A DAY.
     Dates: start: 20160126

REACTIONS (3)
  - Pregnancy with implant contraceptive [Unknown]
  - Vaginal haemorrhage [Unknown]
  - Device failure [Unknown]

NARRATIVE: CASE EVENT DATE: 201602
